FAERS Safety Report 8579053-5 (Version None)
Quarter: 2012Q3

REPORT INFORMATION
  Report Type: 
  Country: None (occurrence: None)
  Receive Date: 20120808
  Receipt Date: 20120806
  Transmission Date: 20120928
  Serious: Yes (Other)
  Sender: FDA-Public Use
  Company Number: US-ROCHE-1086352

PATIENT
  Sex: Male
  Weight: 96.4 kg

DRUGS (2)
  1. ZELBORAF [Suspect]
     Indication: METASTATIC MALIGNANT MELANOMA
     Route: 048
  2. METOPROLOL TARTRATE [Concomitant]
     Route: 048

REACTIONS (3)
  - SUNBURN [None]
  - RASH [None]
  - BLISTER [None]
